FAERS Safety Report 19480947 (Version 1)
Quarter: 2021Q2

REPORT INFORMATION
  Report Type: Spontaneous
  Country: US (occurrence: US)
  Receive Date: 20210630
  Receipt Date: 20210630
  Transmission Date: 20210717
  Serious: No
  Sender: FDA-Public Use
  Company Number: None

PATIENT
  Age: 79 Year
  Sex: Male
  Weight: 86.18 kg

DRUGS (1)
  1. PROLIA [Suspect]
     Active Substance: DENOSUMAB
     Indication: OSTEOPOROSIS
     Dosage: ? QUANTITY:1 DF DOSAGE FORM;OTHER FREQUENCY:2X/YEAR;?
     Route: 058

REACTIONS (5)
  - Musculoskeletal stiffness [None]
  - Peripheral swelling [None]
  - Limb discomfort [None]
  - Pain [None]
  - Gait disturbance [None]

NARRATIVE: CASE EVENT DATE: 20210513
